FAERS Safety Report 8844474 (Version 2)
Quarter: 2012Q4

REPORT INFORMATION
  Report Type: 
  Country: US (occurrence: US)
  Receive Date: 20121017
  Receipt Date: 20121029
  Transmission Date: 20130627
  Serious: Yes (Hospitalization, Other)
  Sender: FDA-Public Use
  Company Number: PHEH2012US020076

PATIENT

DRUGS (2)
  1. TRILEPTAL [Suspect]
  2. KLONOPIN [Suspect]

REACTIONS (24)
  - Neurological symptom [Unknown]
  - Epilepsy [Unknown]
  - Memory impairment [Unknown]
  - Convulsion [Unknown]
  - General physical health deterioration [Unknown]
  - Cognitive disorder [Unknown]
  - Disability [Unknown]
  - Dizziness [Unknown]
  - Confusional state [Unknown]
  - Depressed level of consciousness [Unknown]
  - Hypokinesia [Unknown]
  - Bradyphrenia [Unknown]
  - Disturbance in attention [Unknown]
  - Nervousness [Unknown]
  - Mood swings [Unknown]
  - Visual impairment [Unknown]
  - Speech disorder [Unknown]
  - Coordination abnormal [Unknown]
  - Pain [Unknown]
  - Discomfort [Unknown]
  - Anhedonia [Unknown]
  - Somnolence [Unknown]
  - Eye movement disorder [Unknown]
  - Tremor [Unknown]
